FAERS Safety Report 4897516-0 (Version None)
Quarter: 2006Q1

REPORT INFORMATION
  Report Type: 
  Country: None (occurrence: None)
  Receive Date: 20060130
  Receipt Date: 20060130
  Transmission Date: 20060701
  Serious: Yes (Disabling, Other)
  Sender: FDA-Public Use
  Company Number: None

PATIENT
  Age: 67 Year
  Sex: Female
  Weight: 75.2971 kg

DRUGS (2)
  1. CIPROFLOXACIN [Suspect]
     Indication: PELVIC PAIN
     Dosage: 1 TAB 2 TIMES A DAY
     Dates: start: 20051213
  2. METRONIDAZOLE [Suspect]
     Dosage: 1 TAB 2 TIMES A DAY
     Dates: start: 20051213

REACTIONS (5)
  - MALAISE [None]
  - NAUSEA [None]
  - SKIN IRRITATION [None]
  - URTICARIA [None]
  - VOMITING [None]
